FAERS Safety Report 7998226-3 (Version None)
Quarter: 2011Q4

REPORT INFORMATION
  Report Type: 
  Country: None (occurrence: None)
  Receive Date: 20111221
  Receipt Date: 20110427
  Transmission Date: 20120403
  Serious: No
  Sender: FDA-Public Use
  Company Number: US-GLAXOSMITHKLINE-A0924752A

PATIENT
  Age: 47 Year
  Sex: Female

DRUGS (2)
  1. VITAMIN TAB [Concomitant]
  2. LOVAZA [Suspect]
     Indication: BLOOD CHOLESTEROL INCREASED
     Dosage: 2CAP TWICE PER DAY
     Route: 048
     Dates: start: 20100318, end: 20110426

REACTIONS (6)
  - FATIGUE [None]
  - LETHARGY [None]
  - MALAISE [None]
  - NASOPHARYNGITIS [None]
  - DYSPNOEA [None]
  - DIZZINESS [None]
